FAERS Safety Report 9462760 (Version 1)
Quarter: 2013Q3

REPORT INFORMATION
  Report Type: Spontaneous
  Country: GB (occurrence: None)
  Receive Date: 20130814
  Receipt Date: 20130814
  Transmission Date: 20140515
  Serious: Yes (Other)
  Sender: FDA-Public Use
  Company Number: KAD201308-000955

PATIENT
  Age: 33 Year
  Sex: Male

DRUGS (3)
  1. INFERGEN [Suspect]
     Indication: HEPATITIS C
  2. RIBAVIRIN [Suspect]
     Indication: HEPATITIS C
  3. ZAPONEX [Suspect]
     Indication: SCHIZOPHRENIA
     Dosage: 50 MG MANE AND 275 MG NOCTE, ORAL
     Dates: start: 20100908

REACTIONS (4)
  - Hepatitis C [None]
  - Neutrophil count decreased [None]
  - Platelet count decreased [None]
  - White blood cell count decreased [None]
